FAERS Safety Report 7889071-8 (Version None)
Quarter: 2011Q4

REPORT INFORMATION
  Report Type: 
  Country: None (occurrence: None)
  Receive Date: 20111103
  Receipt Date: 20111024
  Transmission Date: 20120403
  Serious: Yes (Other)
  Sender: FDA-Public Use
  Company Number: AU-PFIZER INC-2011268321

PATIENT
  Age: 81 Year
  Sex: Female
  Weight: 41 kg

DRUGS (7)
  1. DOMPERIDONE [Suspect]
     Indication: NAUSEA
     Dosage: 20 MG, 1X/DAY
     Route: 048
  2. DOMPERIDONE [Suspect]
     Indication: VOMITING
  3. SIMVASTATIN [Suspect]
     Indication: METABOLIC DISORDER
     Dosage: 20 MG, 1X/DAY
     Route: 048
  4. STALEVO 100 [Suspect]
     Indication: PARKINSON'S DISEASE
     Dosage: 4 DOSAGE FORMS
     Route: 048
  5. PERGOLIDE MESYLATE [Suspect]
     Indication: PARKINSON'S DISEASE
     Dosage: 275 UG, UNK
     Route: 048
  6. PANTOPRAZOLE [Suspect]
     Indication: OESOPHAGEAL DISORDER
     Dosage: 40 MG, 1X/DAY
     Route: 048
  7. SLOW-K [Suspect]
     Dosage: 1.8 G, 1X/DAY
     Route: 048

REACTIONS (1)
  - PATHOLOGICAL GAMBLING [None]
